FAERS Safety Report 8113280-6 (Version None)
Quarter: 2012Q1

REPORT INFORMATION
  Report Type: 
  Country: None (occurrence: None)
  Receive Date: 20120203
  Receipt Date: 20120131
  Transmission Date: 20120608
  Serious: No
  Sender: FDA-Public Use
  Company Number: US-PFIZER INC-2012026848

PATIENT
  Sex: Male

DRUGS (8)
  1. LIPITOR [Suspect]
     Indication: BLOOD CHOLESTEROL INCREASED
     Dosage: 10 MG, DAILY
     Dates: start: 19960101
  2. DICLOFENAC [Concomitant]
     Dosage: 75 MG, 2X/DAY
  3. LOVAZA [Concomitant]
     Dosage: 1000 MG, DAILY
  4. VITAMIN D [Concomitant]
     Dosage: 400 IU, DAILY
  5. OMEPRAZOLE [Concomitant]
     Dosage: 40 MG, 2X/DAY
  6. MULTI-VITAMINS [Concomitant]
     Dosage: UNK, DAILY
  7. GABAPENTIN [Concomitant]
     Dosage: 300 MG, 5X/DAY
  8. AMLODIPINE [Concomitant]
     Dosage: 10 MG, DAILY

REACTIONS (1)
  - FIBROMYALGIA [None]
